FAERS Safety Report 7916839-1 (Version None)
Quarter: 2011Q4

REPORT INFORMATION
  Report Type: 
  Country: None (occurrence: None)
  Receive Date: 20111116
  Receipt Date: 20111108
  Transmission Date: 20120403
  Serious: Yes (Hospitalization)
  Sender: FDA-Public Use
  Company Number: DE-BRISTOL-MYERS SQUIBB COMPANY-16225062

PATIENT
  Age: 31 Year
  Sex: Female

DRUGS (4)
  1. CITALOPRAM HYDROBROMIDE [Concomitant]
     Dosage: SINCE MONTHS
     Route: 048
  2. ZIPRASIDONE HYDROCHLORIDE [Concomitant]
     Dates: start: 20110610
  3. KALINOR [Concomitant]
     Route: 048
     Dates: start: 20110517
  4. ABILIFY [Suspect]
     Route: 048
     Dates: start: 20110603, end: 20110607

REACTIONS (1)
  - SIALOADENITIS [None]
